FAERS Safety Report 23764022 (Version 1)
Quarter: 2024Q2

REPORT INFORMATION
  Report Type: Spontaneous
  Country: ES (occurrence: ES)
  Receive Date: 20240419
  Receipt Date: 20240419
  Transmission Date: 20240715
  Serious: Yes (Other)
  Sender: FDA-Public Use
  Company Number: ES-ELI_LILLY_AND_COMPANY-ES202404004746

PATIENT
  Age: 48 Year
  Sex: Female

DRUGS (1)
  1. ABEMACICLIB [Suspect]
     Active Substance: ABEMACICLIB
     Indication: Product used for unknown indication
     Dosage: UNK, UNKNOWN
     Route: 065

REACTIONS (6)
  - Cyst [Unknown]
  - Constipation [Unknown]
  - Mood altered [Unknown]
  - Stress [Unknown]
  - Food craving [Unknown]
  - Anxiety [Unknown]

NARRATIVE: CASE EVENT DATE: 20240301
